FAERS Safety Report 14544011 (Version 2)
Quarter: 2018Q1

REPORT INFORMATION
  Report Type: Spontaneous
  Country: BE (occurrence: BE)
  Receive Date: 20180216
  Receipt Date: 20180302
  Transmission Date: 20180509
  Serious: Yes (Other)
  Sender: FDA-Public Use
  Company Number: BE-PFIZER INC-2018066058

PATIENT
  Sex: Male

DRUGS (3)
  1. TEMESTA (LORAZEPAM) [Suspect]
     Active Substance: LORAZEPAM
     Dosage: 3 SOMETIMES EVEN 4 TABLETS A DAY, DOSE GRADUALLY INCREASED
  2. LYRICA [Concomitant]
     Active Substance: PREGABALIN
  3. ABILIFY [Concomitant]
     Active Substance: ARIPIPRAZOLE

REACTIONS (4)
  - Drug dependence [Unknown]
  - Disease recurrence [Unknown]
  - Drug tolerance increased [Unknown]
  - Panic attack [Unknown]
